FAERS Safety Report 25589032 (Version 2)
Quarter: 2025Q3

REPORT INFORMATION
  Report Type: Report from Study
  Country: US (occurrence: US)
  Receive Date: 20250722
  Receipt Date: 20250813
  Transmission Date: 20251020
  Serious: Yes (Hospitalization, Other)
  Sender: ABBVIE
  Company Number: US-ABBVIE-6378872

PATIENT
  Age: 65 Year
  Sex: Female
  Weight: 103.87 kg

DRUGS (22)
  1. LINZESS [Suspect]
     Active Substance: LINACLOTIDE
     Indication: Irritable bowel syndrome
     Dosage: 290 MICROGRAM
     Route: 048
     Dates: start: 202507
  2. LINZESS [Suspect]
     Active Substance: LINACLOTIDE
     Indication: Irritable bowel syndrome
     Dosage: 145 MICROGRAM
     Route: 048
     Dates: start: 2023, end: 2023
  3. LINZESS [Suspect]
     Active Substance: LINACLOTIDE
     Indication: Irritable bowel syndrome
     Dosage: 145 MICROGRAM
     Route: 048
     Dates: start: 202506, end: 202507
  4. OMEPRAZOLE [Concomitant]
     Active Substance: OMEPRAZOLE
     Indication: Product used for unknown indication
  5. HUMULIN NOS [Concomitant]
     Active Substance: INSULIN HUMAN
     Indication: Diabetes mellitus
  6. ATORVASTATIN [Concomitant]
     Active Substance: ATORVASTATIN
     Indication: Blood cholesterol increased
  7. OXYBUTYNIN [Concomitant]
     Active Substance: OXYBUTYNIN
     Indication: Asthma
  8. MEMANTINE [Concomitant]
     Active Substance: MEMANTINE
     Indication: Cardiac disorder
  9. MAGNESIUM [Concomitant]
     Active Substance: MAGNESIUM
     Indication: Product used for unknown indication
  10. FORTEO [Concomitant]
     Active Substance: TERIPARATIDE
     Indication: Osteoporosis
  11. TRESIBA [Concomitant]
     Active Substance: INSULIN DEGLUDEC
     Indication: Product used for unknown indication
  12. ISOSORBIDE [Concomitant]
     Active Substance: ISOSORBIDE
     Indication: Product used for unknown indication
  13. ACETAMINOPHEN\HYDROCODONE [Suspect]
     Active Substance: ACETAMINOPHEN\HYDROCODONE
     Indication: Product used for unknown indication
     Route: 065
  14. CALCIUM [Concomitant]
     Active Substance: CALCIUM
     Indication: Product used for unknown indication
  15. DOXEPIN [Concomitant]
     Active Substance: DOXEPIN
     Indication: Migraine
  16. METOPROLOL [Concomitant]
     Active Substance: METOPROLOL
     Indication: Cardiac disorder
  17. OZEMPIC [Concomitant]
     Active Substance: SEMAGLUTIDE
     Indication: Product used for unknown indication
  18. ONDANSETRON [Concomitant]
     Active Substance: ONDANSETRON
     Indication: Gastrointestinal disorder
  19. TOPIRAMATE [Concomitant]
     Active Substance: TOPIRAMATE
     Indication: Migraine
  20. VITAMIN B12 [Concomitant]
     Active Substance: CYANOCOBALAMIN
     Indication: Product used for unknown indication
  21. AMITRIPTYLINE [Concomitant]
     Active Substance: AMITRIPTYLINE
     Indication: Migraine
  22. LEVOTHYROXINE [Concomitant]
     Active Substance: LEVOTHYROXINE
     Indication: Thyroid disorder

REACTIONS (8)
  - Nephrolithiasis [Not Recovered/Not Resolved]
  - Musculoskeletal disorder [Not Recovered/Not Resolved]
  - Constipation [Recovered/Resolved]
  - Pain in extremity [Not Recovered/Not Resolved]
  - Scar [Not Recovered/Not Resolved]
  - Foot deformity [Recovered/Resolved]
  - Urinary tract infection [Not Recovered/Not Resolved]
  - Product prescribing error [Unknown]

NARRATIVE: CASE EVENT DATE: 20230101
